FAERS Safety Report 6696570-3 (Version None)
Quarter: 2010Q2

REPORT INFORMATION
  Report Type: 
  Country: None (occurrence: None)
  Receive Date: 20100421
  Receipt Date: 20091221
  Transmission Date: 20101027
  Serious: No
  Sender: FDA-Public Use
  Company Number: US-000033

PATIENT
  Sex: Female

DRUGS (2)
  1. KUVAN [Suspect]
     Indication: PHENYLKETONURIA
     Dosage: (100 MG BID ORAL)
     Route: 048
     Dates: start: 20091209, end: 20100101
  2. NUTRIENTS WITHOUT PHENYLALANINE [Concomitant]

REACTIONS (2)
  - TOOTH ABSCESS [None]
  - VOMITING [None]
